FAERS Safety Report 9800703 (Version 1)
Quarter: 2014Q1

REPORT INFORMATION
  Report Type: Spontaneous
  Country: US (occurrence: US)
  Receive Date: 20140107
  Receipt Date: 20140107
  Transmission Date: 20141002
  Serious: Yes (Other)
  Sender: FDA-Public Use
  Company Number: US-JNJFOC-20131217458

PATIENT
  Age: 27 Year
  Sex: Male
  Weight: 90.72 kg

DRUGS (1)
  1. BENGAY ULTRA STRENGTH REGULAR SIZE [Suspect]
     Indication: BACK PAIN
     Route: 050
     Dates: start: 20131227

REACTIONS (1)
  - Chemical injury [Not Recovered/Not Resolved]
